FAERS Safety Report 12597846 (Version 1)
Quarter: 2016Q3

REPORT INFORMATION
  Report Type: Spontaneous
  Country: JP (occurrence: JP)
  Receive Date: 20160727
  Receipt Date: 20160727
  Transmission Date: 20161109
  Serious: Yes (Hospitalization, Other)
  Sender: FDA-Public Use
  Company Number: JP-MYLANLABS-2016M1030152

PATIENT

DRUGS (3)
  1. BERAPROST [Suspect]
     Active Substance: BERAPROST
     Indication: THROMBOANGIITIS OBLITERANS
     Dosage: 20 ?G, TID
     Route: 048
     Dates: start: 20160322
  2. CILOSTAZOL MYLAN [Suspect]
     Active Substance: CILOSTAZOL
     Indication: THROMBOANGIITIS OBLITERANS
     Dosage: 100 MG, BID
     Route: 048
     Dates: start: 20160322
  3. CHAMPIX [Suspect]
     Active Substance: VARENICLINE TARTRATE
     Indication: NICOTINE DEPENDENCE
     Dosage: 1 MG, BID
     Route: 048
     Dates: start: 20160323, end: 20160604

REACTIONS (3)
  - Interstitial lung disease [Recovering/Resolving]
  - Condition aggravated [Recovering/Resolving]
  - Silicosis [Unknown]

NARRATIVE: CASE EVENT DATE: 20160614
